FAERS Safety Report 8385696-4 (Version None)
Quarter: 2012Q2

REPORT INFORMATION
  Report Type: 
  Country: None (occurrence: None)
  Receive Date: 20120522
  Receipt Date: 20120522
  Transmission Date: 20120825
  Serious: Yes (Other)
  Sender: FDA-Public Use
  Company Number: None

PATIENT
  Age: 58 Year
  Sex: Female
  Weight: 72.5755 kg

DRUGS (3)
  1. VENLAFAXINE HCL EXTENDED-RELEASE [Suspect]
     Dosage: 1 QD PO
     Route: 048
     Dates: start: 20101229
  2. VENLAFAXINE HCL EXTENDED-RELEASE [Suspect]
     Dosage: 1 QD PO
     Route: 048
     Dates: start: 20101023
  3. VENLAFAXINE HCL EXTENDED-RELEASE [Suspect]
     Dosage: 1 QD PO
     Route: 048
     Dates: start: 20100829

REACTIONS (1)
  - TREATMENT FAILURE [None]
